FAERS Safety Report 25205883 (Version 5)
Quarter: 2025Q4

REPORT INFORMATION
  Report Type: Report from Study
  Country: EU (occurrence: EU)
  Receive Date: 20250417
  Receipt Date: 20251023
  Transmission Date: 20260117
  Serious: Yes (Hospitalization)
  Sender: ABBVIE
  Company Number: EU-ABBVIE-6202409

PATIENT
  Age: 69 Year
  Sex: Male

DRUGS (1)
  1. FOSCARBIDOPA\FOSLEVODOPA [Suspect]
     Active Substance: FOSCARBIDOPA\FOSLEVODOPA
     Indication: Parkinson^s disease
     Dosage: CRN: 0.40 ML/H, CR: 0.63 ML/H, CRH: 0.65 ML/H, ED: 0.25 ML
     Route: 058
     Dates: start: 20250116

REACTIONS (2)
  - Infusion site induration [Not Recovered/Not Resolved]
  - Infusion site abscess [Not Recovered/Not Resolved]

NARRATIVE: CASE EVENT DATE: 20250101
